FAERS Safety Report 6393388-6 (Version None)
Quarter: 2009Q4

REPORT INFORMATION
  Report Type: 
  Country: None (occurrence: None)
  Receive Date: 20091008
  Receipt Date: 20091002
  Transmission Date: 20100525
  Serious: Yes (Death, Hospitalization)
  Sender: FDA-Public Use
  Company Number: US-AMGEN-US354799

PATIENT
  Sex: Female
  Weight: 80.1 kg

DRUGS (8)
  1. NPLATE [Suspect]
     Indication: IDIOPATHIC THROMBOCYTOPENIC PURPURA
     Route: 058
     Dates: start: 20090618, end: 20090618
  2. CORTICOSTEROIDS [Concomitant]
     Route: 065
     Dates: start: 20090529
  3. IMMUNOGLOBULINS [Concomitant]
     Route: 042
     Dates: start: 20090529
  4. RITUXIMAB [Concomitant]
     Route: 065
     Dates: start: 20090612
  5. DEXAMETHASONE 0.5MG TAB [Concomitant]
     Route: 042
     Dates: start: 20090515
  6. DILTIAZEM [Concomitant]
     Route: 048
     Dates: start: 20080616
  7. FOLIC ACID [Concomitant]
     Route: 048
  8. INDERAL [Concomitant]
     Route: 048
     Dates: start: 20090515

REACTIONS (6)
  - ANAEMIA [None]
  - BLOOD CULTURE POSITIVE [None]
  - ESCHERICHIA INFECTION [None]
  - GASTROINTESTINAL HAEMORRHAGE [None]
  - THROMBOCYTOPENIA [None]
  - URINARY TRACT INFECTION [None]
